FAERS Safety Report 17753270 (Version 1)
Quarter: 2020Q2

REPORT INFORMATION
  Report Type: Spontaneous
  Country: DE (occurrence: DE)
  Receive Date: 20200506
  Receipt Date: 20200506
  Transmission Date: 20200714
  Serious: Yes (Hospitalization)
  Sender: FDA-Public Use
  Company Number: DE-TAKEDA-2020TUS021083

PATIENT
  Sex: Female
  Weight: 93.5 kg

DRUGS (8)
  1. SIMPONI [Suspect]
     Active Substance: GOLIMUMAB
     Indication: COLITIS ULCERATIVE
     Dosage: 100 MILLIGRAM
     Route: 058
     Dates: start: 20191005
  2. SIMPONI [Suspect]
     Active Substance: GOLIMUMAB
     Dosage: 100 MILLIGRAM
     Route: 058
     Dates: start: 20191103
  3. AZOPT [Concomitant]
     Active Substance: BRINZOLAMIDE
     Indication: GLAUCOMA
     Route: 065
  4. SIMPONI [Suspect]
     Active Substance: GOLIMUMAB
     Dosage: 100 MILLIGRAM
     Route: 058
     Dates: start: 20200126
  5. SIMPONI [Suspect]
     Active Substance: GOLIMUMAB
     Dosage: 100 MILLIGRAM
     Route: 058
     Dates: start: 20191203
  6. CANDESARTAN. [Concomitant]
     Active Substance: CANDESARTAN
     Indication: HYPERTENSION
     Dosage: 16 MILLIGRAM, QD
     Route: 065
     Dates: start: 1986
  7. ENTYVIO [Suspect]
     Active Substance: VEDOLIZUMAB
     Indication: COLITIS ULCERATIVE
     Dosage: 300 MILLIGRAM
     Route: 065
     Dates: start: 20160224
  8. L THYROXINE [Concomitant]
     Active Substance: LEVOTHYROXINE SODIUM
     Indication: HYPOTHYROIDISM
     Dosage: 50 MICROGRAM, QD
     Route: 065
     Dates: start: 20180108

REACTIONS (1)
  - Peritoneal tuberculosis [Not Recovered/Not Resolved]

NARRATIVE: CASE EVENT DATE: 20200110
